FAERS Safety Report 4285757-5 (Version None)
Quarter: 2004Q1

REPORT INFORMATION
  Report Type: 
  Country: None (occurrence: None)
  Receive Date: 20040203
  Receipt Date: 20040126
  Transmission Date: 20041129
  Serious: Yes (Hospitalization)
  Sender: FDA-Public Use
  Company Number: FR-JNJFOC-20031006468

PATIENT
  Age: 25 Year
  Sex: Male

DRUGS (11)
  1. PEVARYL (ECONAZOLE NITRATE) SPRAY-SOLUTION [Suspect]
     Indication: INTERTRIGO
     Dosage: 2 IN 1 DAY, TOPICAL
     Route: 061
     Dates: start: 20030918, end: 20030921
  2. BIAFINE (BIAFINE) [Suspect]
     Dates: start: 20030918, end: 20030929
  3. HYDROCORTISONE BUTYRATE [Suspect]
     Dosage: TOPICAL
     Route: 061
     Dates: start: 20030909, end: 20030915
  4. HEXOMEDINE (HEXAMIDINE ISETIONATE) [Suspect]
     Dosage: TOPICAL
     Route: 061
     Dates: start: 20030909, end: 20030909
  5. LAMISIL [Suspect]
     Dosage: TOPICAL
     Route: 061
     Dates: start: 20030918, end: 20030929
  6. FUCIDINE CAP [Concomitant]
  7. POLARAMINE [Concomitant]
  8. DIPROSONE (DEXCHLORPHENIRAMINE MALEATE) [Concomitant]
  9. DIPROSONE [Concomitant]
  10. ATARAX [Concomitant]
  11. PREDNISOLONE [Concomitant]

REACTIONS (7)
  - BACTERIAL TEST POSITIVE [None]
  - DERMATITIS ATOPIC [None]
  - DERMATITIS CONTACT [None]
  - ECZEMA [None]
  - ERYTHEMA MULTIFORME [None]
  - LYMPHOCYTE STIMULATION TEST POSITIVE [None]
  - STAPHYLOCOCCAL INFECTION [None]
